FAERS Safety Report 8618011-9 (Version None)
Quarter: 2012Q3

REPORT INFORMATION
  Report Type: 
  Country: None (occurrence: None)
  Receive Date: 20120824
  Receipt Date: 20120130
  Transmission Date: 20120928
  Serious: No
  Sender: FDA-Public Use
  Company Number: US-ASTRAZENECA-2012SE06453

PATIENT
  Sex: Female

DRUGS (9)
  1. SEROQUEL [Suspect]
     Indication: SLEEP DISORDER
     Route: 048
  2. NASACORT [Concomitant]
     Indication: HYPERSENSITIVITY
     Dosage: PNR
  3. SEROQUEL [Suspect]
     Route: 048
  4. SEROQUEL [Suspect]
     Indication: DEPRESSION
     Route: 048
  5. SEROQUEL [Suspect]
     Route: 048
  6. IMATRIX [Concomitant]
     Indication: MIGRAINE
  7. ALBUTEROL [Concomitant]
     Indication: VERTIGO
     Dosage: PRN
  8. SYMBICORT [Suspect]
     Indication: CHRONIC OBSTRUCTIVE PULMONARY DISEASE
     Route: 055
  9. ELAVIL [Concomitant]

REACTIONS (6)
  - HANGOVER [None]
  - INSOMNIA [None]
  - DRUG DOSE OMISSION [None]
  - DISTURBANCE IN ATTENTION [None]
  - OFF LABEL USE [None]
  - RESPIRATORY DISORDER [None]
